FAERS Safety Report 10097214 (Version 1)
Quarter: 2014Q2

REPORT INFORMATION
  Report Type: Spontaneous
  Country: US (occurrence: US)
  Receive Date: 20140422
  Receipt Date: 20140422
  Transmission Date: 20141212
  Serious: Yes (Hospitalization)
  Sender: FDA-Public Use
  Company Number: PHEH2014US007606

PATIENT
  Sex: Male

DRUGS (10)
  1. FANAPT [Suspect]
     Dosage: 06 MG, UNK
  2. FANAPT [Suspect]
     Dosage: 08 MG, BID
  3. LAMOTRIGINE [Suspect]
     Dosage: UNK UKN, UNK
  4. LITHIUM [Suspect]
     Dosage: UNK UKN, UNK
  5. ZYPREXA [Suspect]
     Dosage: UNK UKN, UNK
  6. KLONOPIN [Concomitant]
     Dosage: 0.5 MG, BID
  7. MULTI-VIT [Concomitant]
     Dosage: UNK UKN, UNK
  8. IRON [Concomitant]
     Dosage: UNK UKN, UNK
  9. VITAMIN D [Concomitant]
     Dosage: UNK UKN, UNK
  10. MELATONIN [Concomitant]
     Dosage: UNK UKN, UNK

REACTIONS (7)
  - Toxicity to various agents [Unknown]
  - Hunger [Unknown]
  - Sexual dysfunction [Unknown]
  - Fatigue [Unknown]
  - Weight increased [Unknown]
  - Dizziness [Unknown]
  - Confusional state [Unknown]
